FAERS Safety Report 6146516-1 (Version None)
Quarter: 2009Q2

REPORT INFORMATION
  Report Type: 
  Country: None (occurrence: None)
  Receive Date: 20090403
  Receipt Date: 20090403
  Transmission Date: 20091009
  Serious: Yes (Disabling, Other)
  Sender: FDA-Public Use
  Company Number: None

PATIENT
  Age: 66 Year
  Sex: Female
  Weight: 48.5349 kg

DRUGS (2)
  1. LYRICA [Suspect]
     Indication: NEUROPATHY PERIPHERAL
     Dosage: 150 MG. TWICE/DAY AT 75MG. EACH TIME ORAL NOW TAKING 25 MG. TWICE PER DAY
     Route: 048
     Dates: start: 20071201
  2. MORPHINE [Concomitant]

REACTIONS (2)
  - EYELID OEDEMA [None]
  - METAMORPHOPSIA [None]
